FAERS Safety Report 11392318 (Version 1)
Quarter: 2015Q3

REPORT INFORMATION
  Report Type: Spontaneous
  Country: DE (occurrence: None)
  Receive Date: 20150814
  Receipt Date: 20150814
  Transmission Date: 20151125
  Serious: Yes (Other)
  Sender: FDA-Public Use
  Company Number: 2015R1-101243

PATIENT
  Age: 1 Day
  Sex: Male
  Weight: 3.9 kg

DRUGS (2)
  1. ORFIRIL LONG (VALPROIC ACID) UNKNOWN [Suspect]
     Active Substance: VALPROIC ACID
     Indication: EPILEPSY
     Dosage: 450[MG/D]/150-0-300
     Route: 064
     Dates: start: 20140911, end: 20150621
  2. LAMOTRIGINE (LAMOTRIGINE) UNKNOWN [Suspect]
     Active Substance: LAMOTRIGINE
     Indication: EPILEPSY
     Dosage: 375 [MG/D]/175-0-200
     Route: 064
     Dates: start: 20140911, end: 20150621

REACTIONS (2)
  - Maternal drugs affecting foetus [None]
  - Respiratory disorder neonatal [None]

NARRATIVE: CASE EVENT DATE: 20150621
